FAERS Safety Report 9352571 (Version 2)
Quarter: 2013Q3

REPORT INFORMATION
  Report Type: Spontaneous
  Country: US (occurrence: US)
  Receive Date: 20130618
  Receipt Date: 20130712
  Transmission Date: 20140515
  Serious: No
  Sender: FDA-Public Use
  Company Number: US-009507513-1306USA006461

PATIENT
  Age: 31 Year
  Sex: Male
  Weight: 104.31 kg

DRUGS (2)
  1. CORICIDIN HCP MAXIMUM STRENGTH FLU [Suspect]
     Indication: INFLUENZA
     Dosage: 1 DF, ONCE
     Route: 048
  2. CORICIDIN HCP MAXIMUM STRENGTH FLU [Suspect]
     Indication: MEDICAL OBSERVATION

REACTIONS (1)
  - Feeling abnormal [Recovered/Resolved]
